FAERS Safety Report 6511670-6 (Version None)
Quarter: 2009Q4

REPORT INFORMATION
  Report Type: 
  Country: None (occurrence: None)
  Receive Date: 20091222
  Receipt Date: 20090508
  Transmission Date: 20100525
  Serious: No
  Sender: FDA-Public Use
  Company Number: US-ASTRAZENECA-2009UW11866

PATIENT
  Sex: Female

DRUGS (5)
  1. CRESTOR [Suspect]
     Indication: BLOOD CHOLESTEROL INCREASED
     Route: 048
  2. SINGULAIR [Concomitant]
  3. LANTUS [Concomitant]
  4. MAGNESIUM [Concomitant]
  5. VITAMIN D [Concomitant]

REACTIONS (1)
  - MUSCLE SPASMS [None]
